FAERS Safety Report 9056230 (Version 1)
Quarter: 2013Q1

REPORT INFORMATION
  Report Type: Report from Study
  Country: CA (occurrence: CA)
  Receive Date: 20130205
  Receipt Date: 20130205
  Transmission Date: 20140127
  Serious: Yes (Other)
  Sender: FDA-Public Use
  Company Number: CA-JNJFOC-20130115722

PATIENT
  Age: 18 None
  Sex: Male
  Weight: 140 kg

DRUGS (5)
  1. REMICADE [Suspect]
     Indication: HIDRADENITIS
     Route: 042
     Dates: start: 20130125, end: 20130125
  2. REMICADE [Suspect]
     Indication: HIDRADENITIS
     Route: 042
     Dates: start: 201008
  3. BENADRYL [Concomitant]
     Indication: PREMEDICATION
     Route: 048
  4. TYLENOL [Concomitant]
     Indication: PREMEDICATION
     Route: 048
  5. ACCUTANE [Concomitant]
     Route: 065

REACTIONS (5)
  - Tachycardia [Recovered/Resolved]
  - Chills [Recovered/Resolved]
  - Nausea [Recovering/Resolving]
  - Vomiting [Recovered/Resolved]
  - Infusion related reaction [Recovering/Resolving]
